FAERS Safety Report 4880649-2 (Version None)
Quarter: 2006Q1

REPORT INFORMATION
  Report Type: 
  Country: None (occurrence: None)
  Receive Date: 20060113
  Receipt Date: 20050218
  Transmission Date: 20060701
  Serious: Yes (Hospitalization)
  Sender: FDA-Public Use
  Company Number: US-MERCK-0502USA02924

PATIENT
  Age: 42 Year
  Sex: Female
  Weight: 76 kg

DRUGS (31)
  1. VIOXX [Suspect]
     Indication: ARTHRALGIA
     Route: 048
     Dates: start: 19990101, end: 20040901
  2. VIOXX [Suspect]
     Route: 048
     Dates: start: 19990101, end: 20040901
  3. VIOXX [Suspect]
     Indication: OSTEOARTHRITIS
     Route: 048
     Dates: start: 19990101, end: 20040901
  4. VIOXX [Suspect]
     Route: 048
     Dates: start: 19990101, end: 20040901
  5. TOPROL-XL [Concomitant]
     Route: 065
  6. DURAGESIC-100 [Concomitant]
     Route: 065
  7. DARVOCET-N 50 [Concomitant]
     Route: 065
  8. GLUCOPHAGE [Concomitant]
     Route: 065
  9. TYLOX [Concomitant]
     Route: 065
  10. [THERAPY UNSPECIFIED] [Concomitant]
     Route: 065
  11. PHENERGAN TABLETS/SUPPOSITORIES [Concomitant]
     Route: 065
  12. VISTARIL [Concomitant]
     Route: 065
  13. NITROGLYCERIN [Concomitant]
     Route: 065
  14. SYNTHROID [Concomitant]
     Route: 065
  15. TOBRADEX [Concomitant]
     Route: 065
  16. REGLAN [Concomitant]
     Route: 065
  17. CHROMAGEN CAPSULES [Concomitant]
     Route: 065
  18. CIPRO [Concomitant]
     Route: 065
  19. EFFEXOR [Concomitant]
     Route: 065
  20. MEPERGAN [Concomitant]
     Route: 065
  21. [THERAPY UNSPECIFIED] [Concomitant]
     Route: 065
  22. TRENTAL [Concomitant]
     Route: 065
  23. ACTOS [Concomitant]
     Route: 065
  24. PREVACID [Concomitant]
     Route: 065
  25. FLEXERIL [Concomitant]
     Route: 048
  26. VYTORIN [Concomitant]
     Route: 048
  27. LEVAQUIN [Concomitant]
     Route: 065
  28. MAXIFEN [Concomitant]
     Route: 065
  29. SEDAPAP TABLETS [Concomitant]
     Route: 065
  30. VERSED [Concomitant]
     Route: 065
  31. DEMEROL [Concomitant]
     Route: 065

REACTIONS (11)
  - ADVERSE EVENT [None]
  - ANORECTAL DISORDER [None]
  - BLADDER DISORDER [None]
  - CARDIAC DISORDER [None]
  - CHEST PAIN [None]
  - GENERAL SYMPTOM [None]
  - INJURY [None]
  - PERIPHERAL VASCULAR DISORDER [None]
  - RECTAL HAEMORRHAGE [None]
  - RESPIRATORY ARREST [None]
  - ROAD TRAFFIC ACCIDENT [None]
